FAERS Safety Report 7128968-3 (Version None)
Quarter: 2010Q4

REPORT INFORMATION
  Report Type: 
  Country: None (occurrence: None)
  Receive Date: 20101130
  Receipt Date: 20101122
  Transmission Date: 20110411
  Serious: Yes (Hospitalization)
  Sender: FDA-Public Use
  Company Number: CA-ROCHE-743496

PATIENT
  Age: 79 Year
  Sex: Female
  Weight: 58 kg

DRUGS (11)
  1. TAMIFLU [Suspect]
     Route: 065
  2. ARICEPT [Concomitant]
  3. CELEXA [Concomitant]
  4. COREG [Concomitant]
  5. ASA [Concomitant]
  6. POTASSIUM CHLORIDE [Concomitant]
     Route: 048
  7. LASIX [Concomitant]
  8. PRAVACHOL [Concomitant]
  9. SEROQUEL [Concomitant]
  10. TYLENOL (CAPLET) [Concomitant]
  11. ZANTAC [Concomitant]

REACTIONS (1)
  - CONVULSION [None]
